FAERS Safety Report 10223657 (Version 1)
Quarter: 2014Q2

REPORT INFORMATION
  Report Type: Report from Study
  Country: US (occurrence: US)
  Receive Date: 20140609
  Receipt Date: 20140609
  Transmission Date: 20141212
  Serious: Yes (Other)
  Sender: FDA-Public Use
  Company Number: US-ROCHE-1366038

PATIENT
  Sex: Female

DRUGS (7)
  1. LUCENTIS [Suspect]
     Indication: DIABETIC EYE DISEASE
     Dosage: LEFT EYE
     Route: 050
  2. LUCENTIS [Suspect]
     Indication: DIABETIC RETINOPATHY
  3. LUCENTIS [Suspect]
     Indication: DIABETIC RETINAL OEDEMA
  4. AVASTIN [Suspect]
     Indication: DIABETIC RETINAL OEDEMA
     Dosage: X 9
     Route: 050
  5. AVASTIN [Suspect]
     Indication: CYSTOID MACULAR OEDEMA
  6. AVASTIN [Suspect]
     Indication: DIABETIC RETINOPATHY
  7. COMBIGAN [Concomitant]
     Dosage: OU, AFTER INJECTION
     Route: 047

REACTIONS (6)
  - Diabetic retinal oedema [Unknown]
  - Cystoid macular oedema [Unknown]
  - Vitreous floaters [Unknown]
  - Headache [Unknown]
  - Glaucoma [Unknown]
  - Cataract [Unknown]
